FAERS Safety Report 10279213 (Version 1)
Quarter: 2014Q3

REPORT INFORMATION
  Report Type: Report from Study
  Country: MX (occurrence: MX)
  Receive Date: 20140707
  Receipt Date: 20140707
  Transmission Date: 20150326
  Serious: Yes (Death)
  Sender: FDA-Public Use
  Company Number: MX-ROCHE-1429520

PATIENT
  Age: 40 Year
  Sex: Male

DRUGS (1)
  1. ROFERON-A [Suspect]
     Active Substance: INTERFERON ALFA-2A
     Indication: RENAL CANCER
     Route: 065
     Dates: start: 20130830

REACTIONS (1)
  - Death [Fatal]

NARRATIVE: CASE EVENT DATE: 20140521
